FAERS Safety Report 25191730 (Version 1)
Quarter: 2025Q2

REPORT INFORMATION
  Report Type: Spontaneous
  Country: US (occurrence: None)
  Receive Date: 20250411
  Receipt Date: 20250411
  Transmission Date: 20250716
  Serious: Yes (Hospitalization)
  Sender: FDA-CTU
  Company Number: None

PATIENT
  Age: 39 Year
  Sex: Female

DRUGS (11)
  1. PULMOZYME [Suspect]
     Active Substance: DORNASE ALFA
     Indication: Cystic fibrosis
     Dosage: FREQUENCY : TWICE A DAY;?
     Route: 048
     Dates: start: 20171024
  2. ADACEL INJ [Concomitant]
  3. ALBUTEROL [Concomitant]
     Active Substance: ALBUTEROL
  4. ALBUTEROL SULFATE [Concomitant]
     Active Substance: ALBUTEROL SULFATE
  5. ALYFTREK [Concomitant]
     Active Substance: DEUTIVACAFTOR\TEZACAFTOR\VANZACAFTOR
  6. BACTRIM TAB 400-SOMG [Concomitant]
  7. CAYSTON INH 75MG [Concomitant]
  8. CREON 5 CAP [Concomitant]
  9. MULTI TAB FOR HIM [Concomitant]
  10. NEXIUM CAP 20MG [Concomitant]
  11. NOVOLOG INJ FLEXPEN [Concomitant]

REACTIONS (3)
  - Dyspnoea [None]
  - Loss of personal independence in daily activities [None]
  - Social problem [None]

NARRATIVE: CASE EVENT DATE: 20250301
